FAERS Safety Report 9187925 (Version 1)
Quarter: 2013Q1

REPORT INFORMATION
  Report Type: Spontaneous
  Country: US (occurrence: US)
  Receive Date: 20130325
  Receipt Date: 20130325
  Transmission Date: 20140127
  Serious: No
  Sender: FDA-Public Use
  Company Number: US-MYLANLABS-2012S1018711

PATIENT
  Age: 52 Year
  Sex: Female
  Weight: 46.72 kg

DRUGS (8)
  1. FENTANYL TRANSDERMAL SYSTEM [Suspect]
     Indication: PAIN
     Dosage: Q48HRS
     Route: 062
     Dates: start: 2008
  2. VICODIN [Concomitant]
     Indication: PAIN
  3. IBUPROFEN [Concomitant]
     Indication: PAIN
  4. SEROQUEL [Concomitant]
     Indication: INSOMNIA
     Route: 048
  5. PREVACID [Concomitant]
  6. ZANTAC [Concomitant]
  7. ALBUTEROL INHALER [Concomitant]
     Indication: ASTHMA
  8. MVI [Concomitant]

REACTIONS (1)
  - Drug withdrawal syndrome [Recovering/Resolving]
